FAERS Safety Report 10082295 (Version 2)
Quarter: 2014Q2

REPORT INFORMATION
  Report Type: Spontaneous
  Country: US (occurrence: US)
  Receive Date: 20140416
  Receipt Date: 20140416
  Transmission Date: 20141212
  Serious: Yes (Other)
  Sender: FDA-Public Use
  Company Number: US-ASTRAZENECA-2014SE12576

PATIENT
  Age: 78 Year
  Sex: Male
  Weight: 104.8 kg

DRUGS (17)
  1. TOPROL  XL [Suspect]
     Indication: HEART RATE DECREASED
     Route: 048
     Dates: start: 1995, end: 2012
  2. CRESTOR [Suspect]
     Indication: BLOOD CHOLESTEROL ABNORMAL
     Route: 048
     Dates: start: 20070811
  3. CRESTOR [Suspect]
     Indication: CORONARY ARTERY DISEASE
     Route: 048
     Dates: start: 20070811
  4. CRESTOR [Suspect]
     Indication: CORONARY ARTERY BYPASS
     Route: 048
     Dates: start: 20070811
  5. CRESTOR [Suspect]
     Indication: BLOOD CHOLESTEROL ABNORMAL
     Route: 048
     Dates: start: 2012
  6. CRESTOR [Suspect]
     Indication: CORONARY ARTERY DISEASE
     Route: 048
     Dates: start: 2012
  7. CRESTOR [Suspect]
     Indication: CORONARY ARTERY BYPASS
     Route: 048
     Dates: start: 2012
  8. PRAMIPEXOL [Concomitant]
     Indication: RESTLESS LEGS SYNDROME
     Dates: start: 2008
  9. TRIAMTERNE [Concomitant]
     Indication: DIURETIC THERAPY
     Dosage: 37.5 AND HCTZ  25 MG DAILY
  10. LOSARTAN [Concomitant]
     Indication: BLOOD PRESSURE ABNORMAL
     Dates: start: 2012
  11. PLAVIX [Concomitant]
     Indication: PLATELET AGGREGATION INHIBITION
     Dates: start: 1995
  12. TRILIPIX [Concomitant]
     Indication: BLOOD CHOLESTEROL ABNORMAL
  13. TRILIPIX [Concomitant]
     Indication: BLOOD TRIGLYCERIDES ABNORMAL
  14. CLONIPIN [Concomitant]
     Indication: MUSCLE RELAXANT THERAPY
  15. SALSALATE [Concomitant]
     Indication: CHEST PAIN
  16. LIPITOR [Concomitant]
  17. FUROSEMIDE [Concomitant]

REACTIONS (16)
  - Type 2 diabetes mellitus [Not Recovered/Not Resolved]
  - Myalgia [Recovered/Resolved]
  - Restless legs syndrome [Unknown]
  - Jaw disorder [Unknown]
  - Chest pain [Unknown]
  - Chest pain [Unknown]
  - Cough [Unknown]
  - Urinary incontinence [Unknown]
  - Muscular weakness [Unknown]
  - Muscle disorder [Not Recovered/Not Resolved]
  - Myopathy [Unknown]
  - Muscle spasms [Unknown]
  - Muscle spasms [Unknown]
  - Insomnia [Unknown]
  - Asthenia [Unknown]
  - Off label use [Unknown]
